FAERS Safety Report 8341682 (Version 2)
Quarter: 2012Q4

REPORT INFORMATION
  Report Type: Spontaneous
  Country: US (occurrence: None)
  Receive Date: 20111209
  Receipt Date: 20120608
  Transmission Date: 20130627
  Serious: Yes (Other)
  Sender: FDA-Public Use
  Company Number: TH-2011-00361

PATIENT
  Age: 43 Year
  Sex: Male
  Weight: 73 kg

DRUGS (4)
  1. EGRIFTA [Suspect]
     Indication: LIPODYSTROPHY ACQUIRED
     Dosage: SUBCUTANEOUS
     Route: 058
     Dates: start: 201102, end: 20110520
  2. ACTOPLUS MET (METFORMIN HYDROCHLORIDE, PIOGLITAZONE HYDROCHLORIDE) [Concomitant]
  3. AMARYL [Concomitant]
  4. AVANDAMET (METFORMIN HYDROCHLORIDE, ROSIGLITAZONE MALEATE) [Concomitant]

REACTIONS (2)
  - Blood glucose increased [None]
  - Glycosylated haemoglobin increased [None]
